FAERS Safety Report 25793348 (Version 1)
Quarter: 2025Q3

REPORT INFORMATION
  Report Type: Report from Study
  Country: EG (occurrence: EG)
  Receive Date: 20250911
  Receipt Date: 20250911
  Transmission Date: 20251021
  Serious: Yes (Other)
  Sender: ABBVIE
  Company Number: EG-ABBVIE-6454029

PATIENT
  Age: 30 Year
  Sex: Female

DRUGS (1)
  1. RINVOQ [Suspect]
     Active Substance: UPADACITINIB
     Indication: Rheumatoid arthritis
     Dosage: 1 TABLET FORM STRENGTH: 15 MILLIGRAM
     Route: 048
     Dates: start: 20240130, end: 20250323

REACTIONS (3)
  - Abortion [Unknown]
  - Maternal exposure during pregnancy [Unknown]
  - Familial mediterranean fever [Unknown]

NARRATIVE: CASE EVENT DATE: 20250801
